FAERS Safety Report 10959666 (Version 2)
Quarter: 2015Q2

REPORT INFORMATION
  Report Type: Spontaneous
  Country: US (occurrence: US)
  Receive Date: 20150327
  Receipt Date: 20150524
  Transmission Date: 20150821
  Serious: No
  Sender: FDA-Public Use
  Company Number: US-JNJFOC-20130113365

PATIENT
  Sex: Male
  Weight: 97.52 kg

DRUGS (3)
  1. FENTANYL TRANSDERMAL [Suspect]
     Active Substance: FENTANYL
     Indication: PAIN
     Route: 062
  2. PAIN MEDICATION [Concomitant]
     Active Substance: UNSPECIFIED INGREDIENT
     Indication: PAIN
     Route: 065
  3. UNKNOWN MEDICATION [Concomitant]
     Active Substance: UNSPECIFIED INGREDIENT
     Route: 065
     Dates: start: 2004

REACTIONS (2)
  - Product quality issue [Unknown]
  - Drug ineffective [Unknown]
